FAERS Safety Report 10538230 (Version 2)
Quarter: 2014Q4

REPORT INFORMATION
  Report Type: Not Available
  Country: DE (occurrence: DE)
  Receive Date: 20141023
  Receipt Date: 20141023
  Transmission Date: 20150529
  Serious: Yes (Death, Other)
  Sender: FDA-Public Use
  Company Number: DE-CELGENE-062-21880-13050180

PATIENT

DRUGS (2)
  1. DEXAMETHASONE. [Concomitant]
     Active Substance: DEXAMETHASONE
     Indication: PLASMA CELL MYELOMA
     Route: 065
  2. REVLIMID [Suspect]
     Active Substance: LENALIDOMIDE
     Indication: PLASMA CELL MYELOMA
     Route: 048

REACTIONS (13)
  - Neoplasm [Unknown]
  - Infection [Fatal]
  - Neutropenia [Unknown]
  - Dizziness [Unknown]
  - Muscle spasms [Unknown]
  - Thrombocytopenia [Unknown]
  - Febrile neutropenia [Unknown]
  - Diarrhoea [Unknown]
  - Plasma cell myeloma [Unknown]
  - Fatigue [Unknown]
  - Neuropathy peripheral [Unknown]
  - Embolism [Fatal]
  - Death [Fatal]
